FAERS Safety Report 9376190 (Version 1)
Quarter: 2013Q3

REPORT INFORMATION
  Report Type: Spontaneous
  Country: FR (occurrence: FR)
  Receive Date: 20130701
  Receipt Date: 20130701
  Transmission Date: 20140515
  Serious: Yes (Hospitalization)
  Sender: FDA-Public Use
  Company Number: FR-ASTRAZENECA-2013SE48589

PATIENT
  Age: 85 Year
  Sex: Female

DRUGS (15)
  1. MERONEM [Suspect]
     Indication: INFECTION
     Route: 042
     Dates: start: 201305, end: 20130527
  2. ZYVOXID [Suspect]
     Indication: INFECTION
     Route: 048
     Dates: start: 201305, end: 20130531
  3. VANCOMYCINE (MYLAN) [Concomitant]
  4. HEPARINE (SODIQUE PANPHARMA) [Concomitant]
  5. CALCIDOSE [Concomitant]
  6. CORDARONE [Concomitant]
  7. HEMIGOXIN NATIVELLE [Concomitant]
  8. SERESTA [Concomitant]
  9. TRANXENE [Concomitant]
  10. INEXIUM [Concomitant]
  11. LASILIX [Concomitant]
  12. LYRICA [Concomitant]
  13. LYSANXIA [Concomitant]
  14. REPAGLINIDE [Concomitant]
  15. TOPALGIC [Concomitant]

REACTIONS (3)
  - Confusional state [Recovered/Resolved]
  - Disorientation [Recovered/Resolved]
  - Fall [Recovered/Resolved]
